FAERS Safety Report 8823636 (Version 2)
Quarter: 2012Q4

REPORT INFORMATION
  Report Type: 
  Country: US (occurrence: US)
  Receive Date: 20121003
  Receipt Date: 20121023
  Transmission Date: 20130627
  Serious: No
  Sender: FDA-Public Use
  Company Number: US-VERTEX PHARMACEUTICAL INC.-2012-021136

PATIENT
  Age: 57 Year
  Sex: Male
  Weight: 88 kg

DRUGS (6)
  1. INCIVEK [Suspect]
     Indication: HEPATITIS C
     Dosage: 750 mg, tid
     Route: 048
     Dates: start: 20120908, end: 20120910
  2. INCIVEK [Suspect]
     Dosage: 750 mg, qd
     Route: 048
     Dates: start: 20120921
  3. PEGASYS [Suspect]
     Indication: HEPATITIS C
     Dosage: 180 UNK, UNK
     Route: 058
     Dates: start: 20120907, end: 20120907
  4. PEGASYS [Suspect]
     Dosage: 180 ?g, UNK
     Route: 058
     Dates: start: 20120921
  5. RIBAVIRIN [Suspect]
     Indication: HEPATITIS C
     Dosage: 600 mg, bid
     Route: 048
     Dates: start: 20120908, end: 20120910
  6. RIBAVIRIN [Suspect]
     Dosage: 600 UNK, UNK
     Route: 048
     Dates: start: 20120921

REACTIONS (9)
  - Chest pain [Not Recovered/Not Resolved]
  - White blood cell count decreased [Not Recovered/Not Resolved]
  - Hyperhidrosis [Not Recovered/Not Resolved]
  - Pallor [Not Recovered/Not Resolved]
  - Back pain [Not Recovered/Not Resolved]
  - Abdominal pain upper [Not Recovered/Not Resolved]
  - Presyncope [Not Recovered/Not Resolved]
  - Red blood cell count decreased [Not Recovered/Not Resolved]
  - Diarrhoea [Not Recovered/Not Resolved]
